FAERS Safety Report 12658720 (Version 4)
Quarter: 2016Q3

REPORT INFORMATION
  Report Type: Report from Study
  Country: US (occurrence: US)
  Receive Date: 20160817
  Receipt Date: 20160919
  Transmission Date: 20161109
  Serious: Yes (Other)
  Sender: FDA-Public Use
  Company Number: US-GILEAD-2016-0213025

PATIENT
  Age: 59 Year
  Sex: Female

DRUGS (4)
  1. OXYGEN. [Concomitant]
     Active Substance: OXYGEN
  2. ORENITRAM [Suspect]
     Active Substance: TREPROSTINIL
     Indication: PRODUCT USED FOR UNKNOWN INDICATION
     Dosage: UNK
     Route: 065
  3. ADEMPAS [Concomitant]
     Active Substance: RIOCIGUAT
  4. AMBRISENTAN [Suspect]
     Active Substance: AMBRISENTAN
     Indication: PRODUCT USED FOR UNKNOWN INDICATION
     Dosage: 5 MG, QD
     Route: 065
     Dates: start: 20101124

REACTIONS (16)
  - Oxygen saturation decreased [Not Recovered/Not Resolved]
  - Gastric disorder [Unknown]
  - Vasodilatation [Unknown]
  - Palpitations [Unknown]
  - Cardiac ablation [Unknown]
  - Fluid retention [Unknown]
  - Malaise [Unknown]
  - Dyspnoea exertional [Unknown]
  - Diarrhoea [Not Recovered/Not Resolved]
  - Tachycardia [Unknown]
  - Hypotension [Unknown]
  - Chest discomfort [Unknown]
  - Weight decreased [Unknown]
  - Dyspepsia [Unknown]
  - Unevaluable event [Unknown]
  - Impaired quality of life [Unknown]

NARRATIVE: CASE EVENT DATE: 20160727
